FAERS Safety Report 10798527 (Version 3)
Quarter: 2015Q4

REPORT INFORMATION
  Report Type: Spontaneous
  Country: US (occurrence: US)
  Receive Date: 20150216
  Receipt Date: 20151118
  Transmission Date: 20160304
  Serious: Yes (Death, Hospitalization, Other)
  Sender: FDA-Public Use
  Company Number: US-MERCK-1502USA007150

PATIENT
  Sex: Female
  Weight: 43.99 kg

DRUGS (2)
  1. JANUVIA [Suspect]
     Active Substance: SITAGLIPTIN PHOSPHATE
     Indication: TYPE 2 DIABETES MELLITUS
     Dosage: 100 MG, QD
     Route: 048
     Dates: start: 20110322, end: 20110722
  2. JANUVIA [Suspect]
     Active Substance: SITAGLIPTIN PHOSPHATE
     Dosage: 50 MG, QD
     Route: 048
     Dates: start: 20110723

REACTIONS (30)
  - Transient ischaemic attack [Unknown]
  - Contusion [Recovered/Resolved]
  - Chronic kidney disease [Not Recovered/Not Resolved]
  - Coronary artery disease [Unknown]
  - Catheter placement [Unknown]
  - Haemorrhagic anaemia [Unknown]
  - Pubis fracture [Not Recovered/Not Resolved]
  - Anaemia [Unknown]
  - Haematoma [Recovered/Resolved]
  - Decreased appetite [Unknown]
  - Death [Fatal]
  - Abnormal loss of weight [Unknown]
  - Appendicectomy [Unknown]
  - Blood cholesterol increased [Unknown]
  - Acute kidney injury [Recovered/Resolved]
  - Osteoarthritis [Unknown]
  - Dementia [Unknown]
  - Asthenia [Not Recovered/Not Resolved]
  - Pancreatic carcinoma [Unknown]
  - Jaundice cholestatic [Unknown]
  - Hypertension [Unknown]
  - Abdominal pain [Unknown]
  - Jaw fracture [Unknown]
  - Vitamin B12 deficiency [Unknown]
  - Depression [Unknown]
  - Osteopenia [Unknown]
  - Hypoglycaemia [Unknown]
  - Fall [Unknown]
  - Dehydration [Unknown]
  - Decubitus ulcer [Unknown]

NARRATIVE: CASE EVENT DATE: 2011
